FAERS Safety Report 4365044-7 (Version None)
Quarter: 2004Q2

REPORT INFORMATION
  Report Type: 
  Country: None (occurrence: None)
  Receive Date: 20040521
  Receipt Date: 20040430
  Transmission Date: 20050107
  Serious: Yes (Other)
  Sender: FDA-Public Use
  Company Number: FR_030902960

PATIENT
  Age: 46 Year
  Sex: Female
  Weight: 59 kg

DRUGS (4)
  1. GEMZAR [Suspect]
     Indication: NON-SMALL CELL LUNG CANCER
     Dosage: 1100 MG/M2/2 OTHER
     Route: 042
     Dates: start: 20030710, end: 20030814
  2. CARBOPLATIN [Concomitant]
  3. KYTRIL [Concomitant]
  4. NEUPOGEN [Concomitant]

REACTIONS (1)
  - CYTOLYTIC HEPATITIS [None]
